FAERS Safety Report 23871646 (Version 1)
Quarter: 2024Q2

REPORT INFORMATION
  Report Type: Spontaneous
  Country: US (occurrence: US)
  Receive Date: 20240519
  Receipt Date: 20240519
  Transmission Date: 20240716
  Serious: Yes (Death, Other)
  Sender: FDA-Public Use
  Company Number: US-NOVITIUMPHARMA-2024USNVP00851

PATIENT
  Age: 46 Year
  Sex: Female

DRUGS (12)
  1. PREDNISONE [Suspect]
     Active Substance: PREDNISONE
     Indication: Systemic lupus erythematosus
  2. PREDNISONE [Suspect]
     Active Substance: PREDNISONE
     Indication: Diffuse large B-cell lymphoma refractory
  3. RITUXIMAB [Concomitant]
     Active Substance: RITUXIMAB
     Indication: Diffuse large B-cell lymphoma refractory
  4. CYCLOPHOSPHAMIDE [Concomitant]
     Active Substance: CYCLOPHOSPHAMIDE
     Indication: Diffuse large B-cell lymphoma refractory
  5. DOXORUBICIN [Concomitant]
     Active Substance: DOXORUBICIN
     Indication: Diffuse large B-cell lymphoma refractory
  6. VINCRISTINE [Concomitant]
     Active Substance: VINCRISTINE
     Indication: Diffuse large B-cell lymphoma refractory
  7. IFOSFAMIDE [Concomitant]
     Active Substance: IFOSFAMIDE
     Indication: Diffuse large B-cell lymphoma refractory
  8. CARBOPLATIN [Concomitant]
     Active Substance: CARBOPLATIN
     Indication: Diffuse large B-cell lymphoma refractory
  9. ETOPOSIDE [Concomitant]
     Active Substance: ETOPOSIDE
     Indication: Diffuse large B-cell lymphoma refractory
  10. BLEOMYCIN [Concomitant]
     Active Substance: BLEOMYCIN SULFATE
     Indication: Diffuse large B-cell lymphoma refractory
  11. METHOTREXATE [Concomitant]
     Active Substance: METHOTREXATE
     Indication: Diffuse large B-cell lymphoma refractory
  12. LEUCOVORIN [Concomitant]
     Active Substance: LEUCOVORIN\LEUCOVORIN CALCIUM
     Indication: Diffuse large B-cell lymphoma refractory

REACTIONS (3)
  - Drug ineffective [Fatal]
  - Mycobacterium avium complex infection [Unknown]
  - Arthritis infective [Unknown]
